FAERS Safety Report 7577711-2 (Version None)
Quarter: 2011Q2

REPORT INFORMATION
  Report Type: 
  Country: None (occurrence: None)
  Receive Date: 20110628
  Receipt Date: 20110622
  Transmission Date: 20111010
  Serious: Yes (Hospitalization, Other)
  Sender: FDA-Public Use
  Company Number: US-PFIZER INC-2011139965

PATIENT
  Sex: Female

DRUGS (3)
  1. WELLBUTRIN [Suspect]
     Dosage: 100 MG, 3X/DAY
  2. LYRICA [Suspect]
     Dosage: UNK
  3. WELLBUTRIN [Suspect]
     Dosage: 75 MG, UNK
     Route: 048

REACTIONS (1)
  - DRUG INTERACTION [None]
